FAERS Safety Report 26120206 (Version 2)
Quarter: 2025Q4

REPORT INFORMATION
  Report Type: Spontaneous
  Country: EU (occurrence: EU)
  Receive Date: 20251204
  Receipt Date: 20251209
  Transmission Date: 20260118
  Serious: Yes (Hospitalization, Other)
  Sender: ASTELLAS
  Company Number: EU-ASTELLAS-2025-AER-065874

PATIENT
  Age: 60 Year
  Sex: Female

DRUGS (3)
  1. TACROLIMUS [Suspect]
     Active Substance: TACROLIMUS
     Indication: Renal transplant
     Route: 065
  2. MYCOPHENOLATE MOFETIL [Concomitant]
     Active Substance: MYCOPHENOLATE MOFETIL
     Indication: Renal transplant
     Route: 065
  3. PREDNISONE [Concomitant]
     Active Substance: PREDNISONE
     Indication: Renal transplant
     Route: 065

REACTIONS (7)
  - Pseudomonal bacteraemia [Recovered/Resolved]
  - Infection [Recovered/Resolved]
  - Pseudoaneurysm infection [Recovered/Resolved]
  - Arteritis [Recovered/Resolved]
  - Arterial thrombosis [Recovered/Resolved]
  - Sepsis [Recovered/Resolved]
  - Graft complication [Recovered/Resolved]
